FAERS Safety Report 14160612 (Version 1)
Quarter: 2017Q4

REPORT INFORMATION
  Report Type: Spontaneous
  Country: None (occurrence: US)
  Receive Date: 20171105
  Receipt Date: 20171105
  Transmission Date: 20180321
  Serious: No
  Sender: FDA-Public Use
  Company Number: US-SHIRE-US201728061

PATIENT
  Age: 81 Year
  Sex: Male

DRUGS (1)
  1. GATTEX [Suspect]
     Active Substance: TEDUGLUTIDE\WATER
     Indication: SHORT-BOWEL SYNDROME
     Dosage: 0.236 ML, 1X/DAY:QD
     Route: 058
     Dates: start: 20171020

REACTIONS (3)
  - Dehydration [Recovering/Resolving]
  - Tongue discolouration [Unknown]
  - Blood creatine increased [Unknown]

NARRATIVE: CASE EVENT DATE: 20171020
